FAERS Safety Report 23849825 (Version 3)
Quarter: 2024Q2

REPORT INFORMATION
  Report Type: Report from Study
  Country: CA (occurrence: None)
  Receive Date: 20240513
  Receipt Date: 20240517
  Transmission Date: 20240715
  Serious: Yes (Other)
  Sender: FDA-Public Use
  Company Number: 2024A110405

PATIENT
  Age: 82 Year
  Sex: Female

DRUGS (1)
  1. BREZTRI [Suspect]
     Active Substance: BUDESONIDE\FORMOTEROL\GLYCOPYRROLATE
     Indication: Chronic obstructive pulmonary disease
     Route: 055
     Dates: start: 20240507, end: 20240507

REACTIONS (2)
  - Arthritis [Recovering/Resolving]
  - Device use issue [Recovering/Resolving]

NARRATIVE: CASE EVENT DATE: 20240507
